FAERS Safety Report 23525050 (Version 1)
Quarter: 2024Q1

REPORT INFORMATION
  Report Type: Spontaneous
  Country: FR (occurrence: FR)
  Receive Date: 20240215
  Receipt Date: 20240215
  Transmission Date: 20240410
  Serious: Yes (Other)
  Sender: FDA-Public Use
  Company Number: None

PATIENT
  Age: 73 Year
  Sex: Female

DRUGS (1)
  1. TENOFOVIR [Suspect]
     Active Substance: TENOFOVIR
     Indication: Hepatitis
     Dosage: (SUCCINATE OF) DISOPROXIL
     Route: 048
     Dates: start: 20221101

REACTIONS (1)
  - Hypertension [Not Recovered/Not Resolved]
